FAERS Safety Report 25980138 (Version 1)
Quarter: 2025Q4

REPORT INFORMATION
  Report Type: Spontaneous
  Country: EU (occurrence: None)
  Receive Date: 20251030
  Receipt Date: 20251030
  Transmission Date: 20260117
  Serious: Yes (Other)
  Sender: ORION
  Company Number: EU-EMA-DD-20251017-7482645-133251

PATIENT
  Age: 63 Year
  Sex: Male

DRUGS (4)
  1. METHOTREXATE [Suspect]
     Active Substance: METHOTREXATE
     Indication: Psoriasis
  2. ACITRETIN [Suspect]
     Active Substance: ACITRETIN
     Indication: Psoriasis
  3. CYCLOSPORINE [Suspect]
     Active Substance: CYCLOSPORINE
     Indication: Psoriasis
     Dates: start: 2018
  4. EFALIZUMAB [Suspect]
     Active Substance: EFALIZUMAB
     Indication: Psoriasis

REACTIONS (4)
  - Squamous cell carcinoma [Unknown]
  - Psoriasis [Unknown]
  - Papilloma [Unknown]
  - Keratoacanthoma [Unknown]
